FAERS Safety Report 9373347 (Version 1)
Quarter: 2013Q2

REPORT INFORMATION
  Report Type: Spontaneous
  Country: DK (occurrence: DK)
  Receive Date: 20130627
  Receipt Date: 20130627
  Transmission Date: 20140414
  Serious: Yes (Hospitalization, Other)
  Sender: FDA-Public Use
  Company Number: DK-GLAXOSMITHKLINE-B0903155A

PATIENT
  Age: 80 Year
  Sex: Male

DRUGS (9)
  1. CEFUROXIME [Suspect]
     Indication: PROPHYLAXIS
     Route: 042
  2. CEPHALEXIN [Suspect]
     Indication: PROPHYLAXIS
     Dosage: 1G THREE TIMES PER DAY
     Route: 048
  3. DICLOXACILLIN [Concomitant]
     Indication: PROPHYLAXIS
     Route: 042
  4. BICALUTAMIDE [Concomitant]
  5. SOLIFENACIN SUCCINATE [Concomitant]
  6. TAMSULOSIN [Concomitant]
  7. SIMVASTATIN [Concomitant]
  8. LOSARTAN [Concomitant]
  9. CLOPIDOGREL [Concomitant]

REACTIONS (11)
  - Pseudomembranous colitis [Recovered/Resolved]
  - Clostridium difficile infection [Recovered/Resolved]
  - Abdominal discomfort [Unknown]
  - Constipation [Unknown]
  - Ileus [Unknown]
  - Sepsis [Unknown]
  - Pyrexia [Unknown]
  - Hypotension [Unknown]
  - Renal failure [Unknown]
  - Colitis [Unknown]
  - Gastrointestinal disorder [Unknown]
